FAERS Safety Report 24467147 (Version 1)
Quarter: 2024Q4

REPORT INFORMATION
  Report Type: Report from Study
  Country: AR (occurrence: AR)
  Receive Date: 20241018
  Receipt Date: 20241018
  Transmission Date: 20250115
  Serious: No
  Sender: ROCHE
  Company Number: AR-002147023-NVSC2021AR173735

PATIENT
  Age: 65 Year
  Sex: Male

DRUGS (3)
  1. XOLAIR [Suspect]
     Active Substance: OMALIZUMAB
     Indication: Asthma
     Dosage: 750 MG, QMO
     Route: 058
     Dates: start: 20060703
  2. XOLAIR [Suspect]
     Active Substance: OMALIZUMAB
     Dosage: 750 MG, QMO
     Route: 058
     Dates: start: 20070703
  3. XOLAIR [Suspect]
     Active Substance: OMALIZUMAB
     Dosage: 750  MG, QMO
     Route: 058
     Dates: start: 202109, end: 202110

REACTIONS (4)
  - Catarrh [Unknown]
  - Pyrexia [Recovered/Resolved]
  - Product use issue [Unknown]
  - Urticaria [Recovered/Resolved]

NARRATIVE: CASE EVENT DATE: 20200101
